FAERS Safety Report 23854123 (Version 1)
Quarter: 2024Q2

REPORT INFORMATION
  Report Type: Spontaneous
  Country: US (occurrence: None)
  Receive Date: 20240514
  Receipt Date: 20240514
  Transmission Date: 20240716
  Serious: Yes (Hospitalization)
  Sender: FDA-Public Use
  Company Number: None

PATIENT
  Age: 82 Year
  Sex: Male
  Weight: 71.5 kg

DRUGS (12)
  1. CARBOPLATIN [Suspect]
     Active Substance: CARBOPLATIN
     Dates: end: 20240423
  2. PEMBROLIZUMAB [Suspect]
     Active Substance: PEMBROLIZUMAB
     Dates: end: 20240423
  3. ALIMTA [Suspect]
     Active Substance: PEMETREXED DISODIUM
     Dates: end: 20240423
  4. CABERGOLINE [Concomitant]
     Active Substance: CABERGOLINE
  5. COMPAZINE [Concomitant]
     Active Substance: PROCHLORPERAZINE MALEATE
  6. DECADRON [Concomitant]
     Active Substance: DEXAMETHASONE
  7. ELIQUIS [Concomitant]
     Active Substance: APIXABAN
  8. FOLIC ACID [Concomitant]
     Active Substance: FOLIC ACID
  9. LISINOPRIL [Concomitant]
  10. LOPRESSOR [Concomitant]
     Active Substance: METOPROLOL TARTRATE
  11. LOVASTATIN [Concomitant]
  12. PRILOSEC [Concomitant]
     Active Substance: OMEPRAZOLE MAGNESIUM

REACTIONS (11)
  - Neutropenic sepsis [None]
  - Pancytopenia [None]
  - Asthenia [None]
  - Hypotension [None]
  - Dizziness [None]
  - Palpitations [None]
  - Tachycardia [None]
  - Atrial fibrillation [None]
  - Dyspnoea at rest [None]
  - Leukopenia [None]
  - Pneumonia [None]

NARRATIVE: CASE EVENT DATE: 20240507
